FAERS Safety Report 5313212-X (Version None)
Quarter: 2007Q2

REPORT INFORMATION
  Report Type: 
  Country: None (occurrence: None)
  Receive Date: 20070430
  Receipt Date: 20070423
  Transmission Date: 20071010
  Serious: Yes (Death)
  Sender: FDA-Public Use
  Company Number: US-AMGEN-US221027

PATIENT
  Sex: Female

DRUGS (3)
  1. NEULASTA [Suspect]
     Indication: CHEMOTHERAPY
     Route: 065
  2. FEMARA [Concomitant]
     Route: 065
  3. TAXOTERE [Concomitant]
     Route: 065

REACTIONS (1)
  - BREAST CANCER METASTATIC [None]
